FAERS Safety Report 4713462-7 (Version None)
Quarter: 2005Q3

REPORT INFORMATION
  Report Type: 
  Country: None (occurrence: None)
  Receive Date: 20050713
  Receipt Date: 20050413
  Transmission Date: 20060218
  Serious: Yes (Hospitalization)
  Sender: FDA-Public Use
  Company Number: 2005SE02185

PATIENT
  Age: 26238 Day
  Sex: Male

DRUGS (8)
  1. ROSUVASTATIN [Suspect]
     Indication: CARDIAC FAILURE CHRONIC
     Route: 048
     Dates: start: 20040421
  2. FURANTHRIL [Concomitant]
     Indication: CARDIAC FAILURE
     Dosage: TOTAL DAILY DOSE: 11 MG ORAL
     Route: 048
  3. SALURETIN [Concomitant]
     Indication: CARDIAC FAILURE
     Dosage: TOTAL DAILY DOSE: 25 MG ORAL
     Route: 048
  4. LANITOP [Concomitant]
     Indication: CARDIAC FAILURE
     Dosage: TOTAL DAILY DOSE: 1 TBL ORAL
     Route: 048
  5. OLICARD [Concomitant]
     Indication: MYOCARDIAL ISCHAEMIA
     Dosage: TOTAL DAILY DOSE: 40 MG ORAL
     Route: 048
  6. SINTROM [Concomitant]
     Indication: ATRIAL FIBRILLATION
     Dosage: TOTAL DAILY DOSE: 1 MG ORAL
     Route: 048
  7. AGAPURIN [Concomitant]
     Indication: TRANSIENT ISCHAEMIC ATTACK
     Dosage: TOTAL DAILY DOSE: 1200 MG ORAL
     Route: 048
  8. BERLIPRIL [Concomitant]
     Indication: HYPERTENSION
     Dosage: TOTAL DAILY DOSE: 20 MG ORAL
     Route: 048
     Dates: start: 20040421

REACTIONS (3)
  - CYANOSIS [None]
  - EMBOLECTOMY [None]
  - PAIN [None]
